FAERS Safety Report 7406935-X (Version None)
Quarter: 2011Q2

REPORT INFORMATION
  Report Type: 
  Country: None (occurrence: None)
  Receive Date: 20110406
  Receipt Date: 20110406
  Transmission Date: 20111010
  Serious: Yes (Life-Threatening)
  Sender: FDA-Public Use
  Company Number: None

PATIENT
  Sex: Male
  Weight: 90.7194 kg

DRUGS (2)
  1. LYRICA [Suspect]
     Indication: FIBROMYALGIA
     Dosage: 150MG BEDTIME PM  25MG MORNING AM
     Dates: start: 20101001, end: 20110210
  2. LYRICA [Suspect]
     Indication: NEUROPATHY PERIPHERAL
     Dosage: 150MG BEDTIME PM  25MG MORNING AM
     Dates: start: 20101001, end: 20110210

REACTIONS (9)
  - FATIGUE [None]
  - CHILLS [None]
  - MUSCLE TWITCHING [None]
  - TREMOR [None]
  - CONVULSION [None]
  - DIZZINESS [None]
  - ASTHENIA [None]
  - DISTURBANCE IN ATTENTION [None]
  - SUICIDAL IDEATION [None]
